FAERS Safety Report 10181593 (Version 2)
Quarter: 2014Q2

REPORT INFORMATION
  Report Type: Spontaneous
  Country: US (occurrence: US)
  Receive Date: 20140519
  Receipt Date: 20140519
  Transmission Date: 20141212
  Serious: No
  Sender: FDA-Public Use
  Company Number: US-PFIZER INC-2013339673

PATIENT
  Age: 58 Year
  Sex: Female
  Weight: 81.63 kg

DRUGS (3)
  1. LYRICA [Suspect]
     Indication: FIBROMYALGIA
     Dosage: 75 MG, ONE IN MORNING, ONE IN THE AFTERNOON, AND TWO AT NIGHT
     Route: 048
  2. HYDROCODONE [Concomitant]
     Dosage: UNK
  3. XANAX [Concomitant]
     Dosage: UNK

REACTIONS (2)
  - Pain [Unknown]
  - Drug prescribing error [Unknown]
